FAERS Safety Report 16337022 (Version 1)
Quarter: 2019Q2

REPORT INFORMATION
  Report Type: Spontaneous
  Country: US (occurrence: US)
  Receive Date: 20190521
  Receipt Date: 20190521
  Transmission Date: 20190711
  Serious: Yes (Death, Other)
  Sender: FDA-Public Use
  Company Number: US-009507513-1905USA007636

PATIENT
  Age: 44 Year
  Sex: Female

DRUGS (1)
  1. NEXPLANON [Suspect]
     Active Substance: ETONOGESTREL
     Dosage: 1 IMPLANT (68 MILLIGRAM)
     Route: 059
     Dates: start: 2016

REACTIONS (2)
  - Death [Fatal]
  - Breast cancer [Unknown]

NARRATIVE: CASE EVENT DATE: 20190503
